FAERS Safety Report 6768663-3 (Version None)
Quarter: 2010Q2

REPORT INFORMATION
  Report Type: 
  Country: None (occurrence: None)
  Receive Date: 20100614
  Receipt Date: 20100607
  Transmission Date: 20101027
  Serious: Yes (Other)
  Sender: FDA-Public Use
  Company Number: US-SANOFI-AVENTIS-2010SA032401

PATIENT
  Sex: Female

DRUGS (3)
  1. PLAVIX [Suspect]
     Indication: POOR PERIPHERAL CIRCULATION
     Route: 048
     Dates: start: 20050101
  2. PLAVIX [Suspect]
     Route: 048
     Dates: start: 20050101
  3. THYROID TAB [Concomitant]

REACTIONS (2)
  - HORMONE LEVEL ABNORMAL [None]
  - LOSS OF CONSCIOUSNESS [None]
